FAERS Safety Report 5238890-5 (Version None)
Quarter: 2007Q1

REPORT INFORMATION
  Report Type: 
  Country: None (occurrence: None)
  Receive Date: 20070215
  Receipt Date: 20070205
  Transmission Date: 20070707
  Serious: Yes (Hospitalization, Other)
  Sender: FDA-Public Use
  Company Number: BR-PFIZER INC-2007010225

PATIENT
  Sex: Female

DRUGS (4)
  1. LIPITOR [Suspect]
     Indication: DYSLIPIDAEMIA
     Route: 048
  2. ZELMAC [Concomitant]
     Route: 048
  3. OMEPRAZOLE [Concomitant]
     Route: 048
  4. HYZAAR [Concomitant]
     Route: 048

REACTIONS (5)
  - ANAEMIA [None]
  - AORTIC VALVE DISEASE [None]
  - CHEST PAIN [None]
  - FATIGUE [None]
  - URINARY TRACT INFECTION [None]
